FAERS Safety Report 9600878 (Version 2)
Quarter: 2013Q4

REPORT INFORMATION
  Report Type: Spontaneous
  Country: US (occurrence: US)
  Receive Date: 20131004
  Receipt Date: 20131004
  Transmission Date: 20140711
  Serious: No
  Sender: FDA-Public Use
  Company Number: US-AMGEN-USASP2013034422

PATIENT
  Age: 62 Year
  Sex: Male
  Weight: 86.17 kg

DRUGS (6)
  1. ENBREL [Suspect]
     Indication: PRODUCT USED FOR UNKNOWN INDICATION
     Dosage: 50 MG, QWK
     Route: 058
  2. PRAVASTATIN [Concomitant]
     Dosage: 10 MG, UNK
  3. OMEPRAZOLE [Concomitant]
     Dosage: 40 MG, UNK
  4. DOXYCYCLINE [Concomitant]
     Dosage: 20 MG, UNK
  5. PREDNISONE [Concomitant]
     Dosage: 5 MG, UNK
  6. CITRACAL + D                       /01438101/ [Concomitant]
     Dosage: UNK, QD

REACTIONS (1)
  - Dizziness [Unknown]
